FAERS Safety Report 8457125-3 (Version None)
Quarter: 2012Q2

REPORT INFORMATION
  Report Type: 
  Country: None (occurrence: None)
  Receive Date: 20120615
  Receipt Date: 20120601
  Transmission Date: 20120825
  Serious: Yes (Hospitalization)
  Sender: FDA-Public Use
  Company Number: AUR-APL-2012-02511

PATIENT
  Age: 48 Year
  Sex: Male
  Weight: 86.08 kg

DRUGS (3)
  1. PAROXETINE HCL [Suspect]
     Indication: POST-TRAUMATIC STRESS DISORDER
     Dosage: 40 MG (40 MG, 1 IN 1 D), ORAL
     Route: 048
     Dates: start: 20120309
  2. ZIPRASIDONE HCL [Suspect]
     Indication: POST-TRAUMATIC STRESS DISORDER
     Dosage: (0 MG, 2 IN 1 D), UNKNOWN, (0 MG, 2 IN 1 D), UNKNOWN
     Dates: start: 20120427, end: 20120427
  3. ZIPRASIDONE HCL [Suspect]
     Indication: POST-TRAUMATIC STRESS DISORDER
     Dosage: (0 MG, 2 IN 1 D), UNKNOWN, (0 MG, 2 IN 1 D), UNKNOWN
     Dates: start: 20120430, end: 20120502

REACTIONS (4)
  - SUICIDAL IDEATION [None]
  - DEPRESSION [None]
  - POST-TRAUMATIC STRESS DISORDER [None]
  - HOMICIDAL IDEATION [None]
